FAERS Safety Report 4570485-9 (Version None)
Quarter: 2005Q1

REPORT INFORMATION
  Report Type: 
  Country: None (occurrence: None)
  Receive Date: 20050203
  Receipt Date: 20050203
  Transmission Date: 20050727
  Serious: Yes (Hospitalization)
  Sender: FDA-Public Use
  Company Number: None

PATIENT
  Age: 47 Year
  Sex: Male
  Weight: 110 kg

DRUGS (7)
  1. NAPROXEN [Suspect]
     Indication: BACK PAIN
     Dosage: 500 MG PO BID
     Route: 048
     Dates: start: 20041118, end: 20041227
  2. QUETIAPINE FUMARATE [Concomitant]
  3. GABAPENTIN [Concomitant]
  4. SIMVASTATIN [Concomitant]
  5. QUETIAPINE [Concomitant]
  6. VALPROIC ACID [Concomitant]
  7. LORAZEPAM [Concomitant]

REACTIONS (1)
  - OESOPHAGITIS [None]
